FAERS Safety Report 7773936-1 (Version None)
Quarter: 2011Q3

REPORT INFORMATION
  Report Type: 
  Country: None (occurrence: None)
  Receive Date: 20110920
  Receipt Date: 20110909
  Transmission Date: 20111222
  Serious: Yes (Other)
  Sender: FDA-Public Use
  Company Number: 2011SP040285

PATIENT
  Age: 63 Year
  Sex: Female
  Weight: 59 kg

DRUGS (8)
  1. LEVOTHYROXINE SODIUM [Concomitant]
  2. ZOLPIDEM [Concomitant]
  3. DESLORATADINE [Suspect]
     Indication: COUGH
     Dosage: 5 MG;QD;PO
     Route: 048
     Dates: start: 20050701
  4. DESLORATADINE [Suspect]
     Indication: COUGH
     Dosage: 5 MG;QD;PO
     Route: 048
     Dates: start: 20070501
  5. DESLORATADINE [Suspect]
     Indication: COUGH
     Dosage: 5 MG;QD;PO
     Route: 048
     Dates: start: 20110817
  6. HELICIDINE [Concomitant]
  7. ACETAMINOPHEN [Concomitant]
  8. ZITHROMAX [Concomitant]

REACTIONS (4)
  - HAEMOPTYSIS [None]
  - PLEURAL FIBROSIS [None]
  - BRONCHITIS [None]
  - NO REACTION ON PREVIOUS EXPOSURE TO DRUG [None]
